FAERS Safety Report 9917483 (Version 1)
Quarter: 2014Q1

REPORT INFORMATION
  Report Type: Spontaneous
  Country: US (occurrence: US)
  Receive Date: 20140221
  Receipt Date: 20140221
  Transmission Date: 20141002
  Serious: No
  Sender: FDA-Public Use
  Company Number: US-PFIZER INC-2014048727

PATIENT
  Age: 71 Year
  Sex: Female
  Weight: 90.25 kg

DRUGS (2)
  1. LYRICA [Suspect]
     Indication: BACK PAIN
     Dosage: 50 MG, 1X/DAY
     Route: 048
     Dates: start: 20140113, end: 201401
  2. LYRICA [Suspect]
     Indication: DIABETIC NEUROPATHY
     Dosage: 25 MG, 1X/DAY
     Route: 048
     Dates: start: 201401, end: 201401

REACTIONS (2)
  - Confusional state [Unknown]
  - Blood triglycerides increased [Unknown]
